FAERS Safety Report 4299471-3 (Version None)
Quarter: 2004Q1

REPORT INFORMATION
  Report Type: 
  Country: None (occurrence: None)
  Receive Date: 20040217
  Receipt Date: 20040204
  Transmission Date: 20041129
  Serious: Yes (Other)
  Sender: FDA-Public Use
  Company Number: PL-JNJFOC-20040201554

PATIENT
  Age: 34 Year
  Sex: Female
  Weight: 58 kg

DRUGS (1)
  1. CILEST (NORGESTIMATE/ ETHINYL ESTRADIOL) [Suspect]
     Indication: CONTRACEPTION
     Dates: start: 20031015, end: 20040123

REACTIONS (7)
  - ABDOMINAL PAIN UPPER [None]
  - COMPLICATIONS OF MATERNAL EXPOSURE TO THERAPEUTIC DRUGS [None]
  - HEADACHE [None]
  - JAUNDICE [None]
  - PREGNANCY [None]
  - RETICULOCYTOSIS [None]
  - VOMITING [None]
